FAERS Safety Report 5938205-0 (Version None)
Quarter: 2008Q4

REPORT INFORMATION
  Report Type: 
  Country: None (occurrence: None)
  Receive Date: 20081031
  Receipt Date: 20081020
  Transmission Date: 20090506
  Serious: Yes (Congenital Anomaly)
  Sender: FDA-Public Use
  Company Number: US-PFIZER INC-2008089084

PATIENT
  Sex: Male

DRUGS (1)
  1. VIAGRA [Suspect]
     Route: 050

REACTIONS (3)
  - MATERNAL DRUGS AFFECTING FOETUS [None]
  - PATERNAL DRUGS AFFECTING FOETUS [None]
  - TESTICULAR TORSION [None]
